FAERS Safety Report 19348424 (Version 1)
Quarter: 2021Q2

REPORT INFORMATION
  Report Type: Spontaneous
  Country: US (occurrence: US)
  Receive Date: 20210528
  Receipt Date: 20210528
  Transmission Date: 20210717
  Serious: No
  Sender: FDA-Public Use
  Company Number: None

PATIENT
  Age: 37 Year
  Sex: Female
  Weight: 54.34 kg

DRUGS (2)
  1. SPRYCEL [Suspect]
     Active Substance: DASATINIB
     Indication: CHRONIC MYELOID LEUKAEMIA
     Route: 048
     Dates: start: 20200214
  2. OXYCODONE [Concomitant]
     Active Substance: OXYCODONE

REACTIONS (4)
  - Rhinorrhoea [None]
  - Lacrimation increased [None]
  - Sneezing [None]
  - Nasal congestion [None]

NARRATIVE: CASE EVENT DATE: 20210528
